FAERS Safety Report 5859581-3 (Version None)
Quarter: 2008Q3

REPORT INFORMATION
  Report Type: 
  Country: None (occurrence: None)
  Receive Date: 20080827
  Receipt Date: 20080826
  Transmission Date: 20090109
  Serious: Yes (Other)
  Sender: FDA-Public Use
  Company Number: D0058256A

PATIENT
  Sex: Male

DRUGS (2)
  1. AUGMENTAN FILMTABLETTEN 875/125 [Suspect]
     Indication: URINARY TRACT INFECTION
     Dosage: 2000MG PER DAY
     Route: 048
     Dates: start: 20080802, end: 20080801
  2. CHEMOTHERAPY [Concomitant]
     Route: 065

REACTIONS (2)
  - CIRCULATORY COLLAPSE [None]
  - EPILEPSY [None]
